FAERS Safety Report 17560214 (Version 1)
Quarter: 2020Q1

REPORT INFORMATION
  Report Type: Spontaneous
  Country: US (occurrence: US)
  Receive Date: 20200311
  Receipt Date: 20200311
  Transmission Date: 20200409
  Serious: Yes (Life-Threatening)
  Sender: FDA-Public Use
  Company Number: None

PATIENT
  Age: 70 Year
  Sex: Female
  Weight: 98.43 kg

DRUGS (1)
  1. ESCITALOPRAM [Suspect]
     Active Substance: ESCITALOPRAM OXALATE
     Indication: DEPRESSION
     Dosage: ?          QUANTITY:1 PILL;?
     Route: 048
     Dates: start: 201909, end: 202003

REACTIONS (8)
  - General physical health deterioration [None]
  - Asthenia [None]
  - Hypophagia [None]
  - Mental impairment [None]
  - Refusal of treatment by patient [None]
  - Hypersomnia [None]
  - Mastication disorder [None]
  - Suicidal ideation [None]
